FAERS Safety Report 16336320 (Version 1)
Quarter: 2019Q2

REPORT INFORMATION
  Report Type: Spontaneous
  Country: US (occurrence: US)
  Receive Date: 20190521
  Receipt Date: 20190521
  Transmission Date: 20190711
  Serious: No
  Sender: FDA-Public Use
  Company Number: US-AMGEN-USASP2019078374

PATIENT
  Age: 57 Year
  Sex: Male

DRUGS (3)
  1. ENBREL [Suspect]
     Active Substance: ETANERCEPT
     Indication: RHEUMATOID ARTHRITIS
     Dosage: 50 MILLIGRAM, QWK
     Route: 058
  2. SULINDAC. [Concomitant]
     Active Substance: SULINDAC
     Dosage: 200 MILLIGRAM
  3. FOLIC ACID. [Concomitant]
     Active Substance: FOLIC ACID
     Dosage: 20 MILLIGRAM

REACTIONS (1)
  - Malaise [Recovering/Resolving]
